FAERS Safety Report 6302000-3 (Version None)
Quarter: 2009Q3

REPORT INFORMATION
  Report Type: 
  Country: None (occurrence: None)
  Receive Date: 20090807
  Receipt Date: 20090728
  Transmission Date: 20100115
  Serious: Yes (Hospitalization)
  Sender: FDA-Public Use
  Company Number: GB-PFIZER INC-2009246335

PATIENT
  Age: 31 Year

DRUGS (1)
  1. LYRICA [Suspect]
     Dosage: 300 MG, 3X/DAY

REACTIONS (4)
  - DISTURBANCE IN ATTENTION [None]
  - HALLUCINATION [None]
  - INCORRECT DOSE ADMINISTERED [None]
  - IRRITABILITY [None]
